FAERS Safety Report 4616913-1 (Version None)
Quarter: 2005Q1

REPORT INFORMATION
  Report Type: 
  Country: None (occurrence: None)
  Receive Date: 20050321
  Receipt Date: 20050307
  Transmission Date: 20050727
  Serious: Yes (Hospitalization)
  Sender: FDA-Public Use
  Company Number: 2005042830

PATIENT
  Age: 32 Year
  Sex: Female
  Weight: 63 kg

DRUGS (1)
  1. ZITHROMAX [Suspect]
     Indication: PERTUSSIS
     Dosage: (1 IN 1 D), ORAL
     Route: 048
     Dates: start: 20050114, end: 20050118

REACTIONS (15)
  - BLISTER [None]
  - CHOLESTASIS [None]
  - CYTOLYTIC HEPATITIS [None]
  - CYTOMEGALOVIRUS INFECTION [None]
  - EPSTEIN-BARR VIRUS INFECTION [None]
  - HEPATITIS B [None]
  - HEPATOCELLULAR DAMAGE [None]
  - HUMAN HERPES VIRUS 6 SEROLOGY POSITIVE [None]
  - HYPERSENSITIVITY [None]
  - LYMPHADENOPATHY [None]
  - LYMPHOPENIA [None]
  - PYREXIA [None]
  - RENAL IMPAIRMENT [None]
  - ULTRASOUND ABDOMEN ABNORMAL [None]
  - WHITE BLOOD CELL COUNT DECREASED [None]
